FAERS Safety Report 6571420-4 (Version None)
Quarter: 2010Q1

REPORT INFORMATION
  Report Type: 
  Country: None (occurrence: None)
  Receive Date: 20100205
  Receipt Date: 20100126
  Transmission Date: 20100710
  Serious: Yes (Other)
  Sender: FDA-Public Use
  Company Number: US-PFIZER INC-2010013058

PATIENT
  Sex: Female
  Weight: 77.11 kg

DRUGS (4)
  1. LIPITOR [Suspect]
     Indication: BLOOD CHOLESTEROL INCREASED
     Dosage: 40 MG, 1X/DAY
     Dates: start: 20091201
  2. LIPITOR [Suspect]
     Indication: STENT PLACEMENT
  3. ACETYLSALICYLIC ACID [Suspect]
     Dosage: 325 MG, 1X/DAY
     Dates: start: 20091201
  4. PLAVIX [Concomitant]
     Dosage: UNK

REACTIONS (3)
  - ECCHYMOSIS [None]
  - HAEMORRHAGE [None]
  - MYALGIA [None]
